FAERS Safety Report 5954701-4 (Version None)
Quarter: 2008Q4

REPORT INFORMATION
  Report Type: 
  Country: None (occurrence: None)
  Receive Date: 20081117
  Receipt Date: 20081107
  Transmission Date: 20090506
  Serious: Yes (Hospitalization, Other)
  Sender: FDA-Public Use
  Company Number: PHBS2007BR13295

PATIENT
  Age: 66 Year
  Sex: Male
  Weight: 83 kg

DRUGS (7)
  1. TEGRETOL [Suspect]
     Indication: CONVULSION
     Dosage: 200 MG, Q12H
     Route: 048
  2. TEGRETOL [Suspect]
     Indication: CEREBRAL DISORDER
  3. MAREVAN [Concomitant]
     Indication: HYPERCOAGULATION
     Dosage: 2 TABLETS/DAY
     Route: 048
  4. AAS [Concomitant]
     Indication: CARDIAC DISORDER
     Dosage: 2 TABLETS/DAY
     Route: 048
  5. SELOZOK [Concomitant]
     Dosage: 1 TABLET/MORNING
     Route: 048
  6. GEROVITAL [Concomitant]
     Dosage: 2 TABLETS/DAY
     Route: 048
  7. SIMVASTATIN [Concomitant]
     Indication: BLOOD CHOLESTEROL
     Dosage: 80 MG, QHS
     Route: 048

REACTIONS (18)
  - ABNORMAL DREAMS [None]
  - ALOPECIA [None]
  - ERECTILE DYSFUNCTION [None]
  - FEELING ABNORMAL [None]
  - HALLUCINATION [None]
  - HYPERCOAGULATION [None]
  - IMPAIRED HEALING [None]
  - INFARCTION [None]
  - LOSS OF LIBIDO [None]
  - SKIN EXFOLIATION [None]
  - SOMNOLENCE [None]
  - STENT PLACEMENT [None]
  - SURGERY [None]
  - TENDON DISORDER [None]
  - THROMBOSIS [None]
  - VASCULAR GRAFT [None]
  - VISION BLURRED [None]
  - WOUND INFECTION [None]
